FAERS Safety Report 8448954-0 (Version None)
Quarter: 2012Q2

REPORT INFORMATION
  Report Type: 
  Country: None (occurrence: None)
  Receive Date: 20120619
  Receipt Date: 20120614
  Transmission Date: 20120825
  Serious: Yes (Hospitalization)
  Sender: FDA-Public Use
  Company Number: AU-GLAXOSMITHKLINE-B0809153A

PATIENT
  Age: 29 Year
  Sex: Female

DRUGS (1)
  1. FLOLAN [Suspect]
     Indication: PULMONARY ARTERIAL HYPERTENSION
     Route: 065

REACTIONS (5)
  - FLUSHING [None]
  - HAEMOPTYSIS [None]
  - DIARRHOEA [None]
  - ERYTHEMA [None]
  - PAIN IN JAW [None]
